FAERS Safety Report 10850278 (Version 1)
Quarter: 2015Q1

REPORT INFORMATION
  Report Type: Spontaneous
  Country: US (occurrence: US)
  Receive Date: 20150221
  Receipt Date: 20150221
  Transmission Date: 20150721
  Serious: No
  Sender: FDA-Public Use
  Company Number: US-NOVEN-14US013204

PATIENT
  Sex: Female

DRUGS (2)
  1. TRIAZOLE DERIVATIVES [Concomitant]
     Active Substance: UNSPECIFIED INGREDIENT
     Indication: PRODUCT USED FOR UNKNOWN INDICATION
  2. MINIVELLE [Suspect]
     Active Substance: ESTRADIOL
     Indication: HOT FLUSH
     Dosage: 0.0375MG/DAY, UNK
     Route: 062
     Dates: start: 20141227

REACTIONS (1)
  - Nausea [Not Recovered/Not Resolved]

NARRATIVE: CASE EVENT DATE: 20141227
